FAERS Safety Report 11492969 (Version 1)
Quarter: 2015Q3

REPORT INFORMATION
  Report Type: Spontaneous
  Country: US (occurrence: US)
  Receive Date: 20150911
  Receipt Date: 20150911
  Transmission Date: 20151125
  Serious: No
  Sender: FDA-Public Use
  Company Number: US-009507513-1509USA001757

PATIENT
  Sex: Female

DRUGS (1)
  1. NEXPLANON [Suspect]
     Active Substance: ETONOGESTREL
     Indication: CONTRACEPTION
     Dosage: 68 MG, ONE ROD FOR THREE YEARS
     Route: 059

REACTIONS (4)
  - Dizziness [Unknown]
  - Vomiting [Unknown]
  - Implant site pain [Unknown]
  - Nausea [Unknown]
